FAERS Safety Report 4819720-X (Version None)
Quarter: 2005Q4

REPORT INFORMATION
  Report Type: 
  Country: None (occurrence: None)
  Receive Date: 20051102
  Receipt Date: 20051021
  Transmission Date: 20060501
  Serious: Yes (Hospitalization)
  Sender: FDA-Public Use
  Company Number: 8012888

PATIENT
  Age: 14 Year
  Sex: Female

DRUGS (2)
  1. KEPPRA [Suspect]
     Indication: CONVULSION
     Dosage: 300 MG 3/D PO
     Route: 048
  2. KEPPRA [Suspect]
     Indication: CONVULSION

REACTIONS (4)
  - CONVULSION [None]
  - DYSPHAGIA [None]
  - ERYTHEMA MULTIFORME [None]
  - SKIN HYPERPIGMENTATION [None]
